FAERS Safety Report 4421421-7 (Version None)
Quarter: 2004Q3

REPORT INFORMATION
  Report Type: 
  Country: None (occurrence: None)
  Receive Date: 20040709
  Receipt Date: 20040407
  Transmission Date: 20050211
  Serious: No
  Sender: FDA-Public Use
  Company Number: 2004S1000067

PATIENT

DRUGS (1)
  1. CUBICIN [Suspect]
     Dates: start: 20040101

REACTIONS (2)
  - ERYTHEMA [None]
  - SKIN WARM [None]
